FAERS Safety Report 10521966 (Version 3)
Quarter: 2014Q4

REPORT INFORMATION
  Report Type: Report from Study
  Country: CA (occurrence: CA)
  Receive Date: 20141016
  Receipt Date: 20141104
  Transmission Date: 20150528
  Serious: Yes (Death, Hospitalization)
  Sender: FDA-Public Use
  Company Number: CA-ASTELLAS-2014US014315

PATIENT
  Age: 58 Year
  Sex: Male

DRUGS (1)
  1. TACROLIMUS. [Suspect]
     Active Substance: TACROLIMUS
     Indication: IMMUNOSUPPRESSION
     Dosage: 3.5, ONCE DAILY
     Route: 048
     Dates: start: 20120204

REACTIONS (2)
  - Cerebrovascular accident [Fatal]
  - Aortic dissection [Fatal]

NARRATIVE: CASE EVENT DATE: 20141005
